FAERS Safety Report 5385116-8 (Version None)
Quarter: 2007Q3

REPORT INFORMATION
  Report Type: 
  Country: None (occurrence: None)
  Receive Date: 20070706
  Receipt Date: 20070706
  Transmission Date: 20080115
  Serious: Yes (Hospitalization)
  Sender: FDA-Public Use
  Company Number: None

PATIENT
  Age: 63 Year
  Sex: Male

DRUGS (12)
  1. SIMVASTATIN [Suspect]
     Dosage: 20 MG DAILY PO
     Route: 048
  2. LANTUS [Concomitant]
  3. LORATADINE [Concomitant]
  4. PLAVIX [Concomitant]
  5. SERTRALINE [Concomitant]
  6. LANOXIN [Concomitant]
  7. COREG [Concomitant]
  8. FELODIPINE [Concomitant]
  9. NITRDISC [Concomitant]
  10. NITROGLYCERIN [Concomitant]
  11. VASIX [Concomitant]
  12. OMEPRAZOLE [Concomitant]

REACTIONS (1)
  - MYOPATHY [None]
